FAERS Safety Report 4940955-X (Version None)
Quarter: 2006Q1

REPORT INFORMATION
  Report Type: 
  Country: None (occurrence: None)
  Receive Date: 20060307
  Receipt Date: 20060221
  Transmission Date: 20060701
  Serious: Yes (Life-Threatening, Other)
  Sender: FDA-Public Use
  Company Number: DEU-2005-0001619

PATIENT
  Sex: Male

DRUGS (2)
  1. MORPHINE SULFATE [Suspect]
     Indication: PAIN
     Dosage: 200 MG
  2. DOLANTIN (PETHIDINE HYDROCHLORIDE) [Concomitant]

REACTIONS (71)
  - AGEUSIA [None]
  - ANAEMIA [None]
  - ANXIETY [None]
  - ASTHENIA [None]
  - BALANCE DISORDER [None]
  - BILIARY COLIC [None]
  - BILIARY TRACT DISORDER [None]
  - BLOOD PRESSURE DECREASED [None]
  - BURNING SENSATION [None]
  - CARDIAC DISORDER [None]
  - CARDIOVASCULAR DISORDER [None]
  - COGNITIVE DETERIORATION [None]
  - COLD SWEAT [None]
  - CONDITION AGGRAVATED [None]
  - COUGH [None]
  - CROHN'S DISEASE [None]
  - DEHYDRATION [None]
  - DEPRESSED LEVEL OF CONSCIOUSNESS [None]
  - DEPRESSED MOOD [None]
  - DIARRHOEA HAEMORRHAGIC [None]
  - DISTURBANCE IN ATTENTION [None]
  - DIZZINESS [None]
  - DRUG ADMINISTRATION ERROR [None]
  - DRUG DEPENDENCE [None]
  - DRY MOUTH [None]
  - DYSPHAGIA [None]
  - ENTERITIS [None]
  - EPILEPSY [None]
  - FATIGUE [None]
  - FEELING ABNORMAL [None]
  - FEELING OF DESPAIR [None]
  - FUNGAL SKIN INFECTION [None]
  - GASTRIC DISORDER [None]
  - GASTROINTESTINAL DISORDER [None]
  - GENERAL PHYSICAL HEALTH DETERIORATION [None]
  - HEADACHE [None]
  - HEART RATE INCREASED [None]
  - HYPERHIDROSIS [None]
  - HYPERTENSION [None]
  - HYPOAESTHESIA [None]
  - HYPOAESTHESIA ORAL [None]
  - ILEUS [None]
  - INITIAL INSOMNIA [None]
  - INTESTINAL OBSTRUCTION [None]
  - IRRITABILITY [None]
  - MEDICAL DEVICE COMPLICATION [None]
  - MENTAL DISORDER [None]
  - MICTURITION DISORDER [None]
  - MOOD ALTERED [None]
  - MUSCULAR WEAKNESS [None]
  - NAUSEA [None]
  - OEDEMA PERIPHERAL [None]
  - ORAL DISCOMFORT [None]
  - OSTEOARTHRITIS [None]
  - OVERDOSE [None]
  - PAIN IN EXTREMITY [None]
  - PALPITATIONS [None]
  - PANIC ATTACK [None]
  - PARAESTHESIA ORAL [None]
  - RENAL DISORDER [None]
  - RESPIRATORY DISORDER [None]
  - RESTLESSNESS [None]
  - SOMATOFORM DISORDER [None]
  - SOMNOLENCE [None]
  - THERAPEUTIC RESPONSE INCREASED [None]
  - THIRST [None]
  - TINNITUS [None]
  - TREMOR [None]
  - UNEVALUABLE EVENT [None]
  - VISUAL ACUITY REDUCED [None]
  - VISUAL DISTURBANCE [None]
